FAERS Safety Report 19118453 (Version 1)
Quarter: 2021Q2

REPORT INFORMATION
  Report Type: Spontaneous
  Country: NL (occurrence: NL)
  Receive Date: 20210409
  Receipt Date: 20210409
  Transmission Date: 20210717
  Serious: Yes (Hospitalization)
  Sender: FDA-Public Use
  Company Number: NL-ASTRAZENECA-2021A256682

PATIENT
  Age: 58 Year
  Sex: Female

DRUGS (2)
  1. PALBOCICLIB [Suspect]
     Active Substance: PALBOCICLIB
     Dosage: 125.0MG UNKNOWN
     Route: 048
     Dates: start: 20170426, end: 20180425
  2. FULVESTRANT. [Suspect]
     Active Substance: FULVESTRANT
     Dosage: 500.0MG UNKNOWN
     Route: 030

REACTIONS (1)
  - Hydronephrosis [Unknown]

NARRATIVE: CASE EVENT DATE: 20180122
